FAERS Safety Report 14686486 (Version 6)
Quarter: 2020Q2

REPORT INFORMATION
  Report Type: Report from Study
  Country: US (occurrence: US)
  Receive Date: 20180327
  Receipt Date: 20200514
  Transmission Date: 20200713
  Serious: Yes (Hospitalization, Other)
  Sender: FDA-Public Use
  Company Number: US-009507513-1708USA005056

PATIENT
  Age: 65 Year
  Sex: Male
  Weight: 49.89 kg

DRUGS (17)
  1. DILAUDID [Suspect]
     Active Substance: HYDROMORPHONE HYDROCHLORIDE
     Dosage: 4 MG, EVERY 4 HOURS
     Dates: start: 201703
  2. TUMS [Concomitant]
     Active Substance: CALCIUM CARBONATE
     Indication: GASTROINTESTINAL DISORDER
     Dosage: UNK
  3. REGLAN [Concomitant]
     Active Substance: METOCLOPRAMIDE HYDROCHLORIDE
     Indication: GASTROINTESTINAL DISORDER
     Dosage: UNK
  4. TAXOL [Suspect]
     Active Substance: PACLITAXEL
     Dosage: 3 WEEKS ON AND ONE WEEK OFF
     Dates: start: 20170613, end: 201709
  5. GABAPENTIN. [Suspect]
     Active Substance: GABAPENTIN
     Dosage: UNK
  6. LEVOTHYROXINE SODIUM. [Concomitant]
     Active Substance: LEVOTHYROXINE SODIUM
     Dosage: UNK
  7. PEMBROLIZUMAB. [Suspect]
     Active Substance: PEMBROLIZUMAB
     Indication: HEAD AND NECK CANCER
     Dosage: 200 MILLIGRAM, EVERY 3 WEEKS, STRENGTH: 100 MG
     Route: 042
     Dates: start: 20170718
  8. RANITIDINE. [Concomitant]
     Active Substance: RANITIDINE
     Indication: GASTROINTESTINAL DISORDER
     Dosage: UNK
  9. LEVOTHYROXINE SODIUM. [Concomitant]
     Active Substance: LEVOTHYROXINE SODIUM
     Dosage: 25 MICROGRAM
  10. DILAUDID [Suspect]
     Active Substance: HYDROMORPHONE HYDROCHLORIDE
     Dosage: THE PATIENT WAS TRYING TO WEAN DOWN THE DOSAGE ON HIS OWN, UNK
  11. ZOLOFT [Concomitant]
     Active Substance: SERTRALINE HYDROCHLORIDE
     Dosage: UNK
  12. HYDROMORPHONE [Concomitant]
     Active Substance: HYDROMORPHONE
     Dosage: UNK
  13. FENTANYL. [Concomitant]
     Active Substance: FENTANYL
     Dosage: UNK
  14. SERTRALINE HYDROCHLORIDE. [Concomitant]
     Active Substance: SERTRALINE HYDROCHLORIDE
     Dosage: UNK
  15. CARBOPLATIN. [Suspect]
     Active Substance: CARBOPLATIN
     Dosage: 3 WEEKS ON AND ONE WEEK OFF
     Dates: start: 20170613, end: 201709
  16. ZANTAC [Concomitant]
     Active Substance: RANITIDINE HYDROCHLORIDE
     Dosage: UNK
  17. NEXIUM I.V. [Concomitant]
     Active Substance: ESOMEPRAZOLE SODIUM
     Indication: GASTROINTESTINAL DISORDER
     Dosage: UNK

REACTIONS (55)
  - Pneumonia aspiration [Unknown]
  - Feeling abnormal [Unknown]
  - Inappropriate schedule of product administration [Unknown]
  - Immune system disorder [Unknown]
  - Malnutrition [Unknown]
  - Gastric disorder [Unknown]
  - Blood thyroid stimulating hormone increased [Unknown]
  - Rash [Recovering/Resolving]
  - Wrong technique in device usage process [Unknown]
  - Tracheostomy [Unknown]
  - Choking [Recovered/Resolved]
  - Complication associated with device [Recovered/Resolved]
  - Central venous catheterisation [Unknown]
  - Weight fluctuation [Not Recovered/Not Resolved]
  - Adverse drug reaction [Unknown]
  - Central venous catheterisation [Unknown]
  - Limb injury [Unknown]
  - Feeling cold [Unknown]
  - Papilloma viral infection [Unknown]
  - Dehydration [Unknown]
  - Flushing [Recovering/Resolving]
  - Vomiting [Unknown]
  - Radiation injury [Unknown]
  - Aspiration [Not Recovered/Not Resolved]
  - Complication associated with device [Recovered/Resolved]
  - Complication associated with device [Recovered/Resolved]
  - Lethargy [Unknown]
  - Depression [Not Recovered/Not Resolved]
  - Hypotension [Unknown]
  - Nasal congestion [Unknown]
  - Gastrointestinal disorder [Recovering/Resolving]
  - Gastrointestinal viral infection [Not Recovered/Not Resolved]
  - Muscle disorder [Unknown]
  - Dry mouth [Unknown]
  - Abdominal pain upper [Unknown]
  - Diarrhoea [Recovered/Resolved]
  - Post procedural hypothyroidism [Recovering/Resolving]
  - Near death experience [Unknown]
  - Pyrexia [Unknown]
  - Impaired healing [Not Recovered/Not Resolved]
  - Gastrointestinal tube insertion [Unknown]
  - Feeling abnormal [Recovered/Resolved]
  - Catheter site infection [Recovered/Resolved]
  - Cancer surgery [Unknown]
  - Emotional disorder [Unknown]
  - Nausea [Unknown]
  - Inappropriate schedule of product administration [Unknown]
  - Drug dependence [Unknown]
  - Heart rate increased [Unknown]
  - Malignant neoplasm progression [Unknown]
  - Chest pain [Unknown]
  - Skin lesion [Unknown]
  - Abnormal loss of weight [Unknown]
  - Fatigue [Unknown]
  - Diarrhoea [Unknown]

NARRATIVE: CASE EVENT DATE: 2000
